FAERS Safety Report 4870679-9 (Version None)
Quarter: 2005Q4

REPORT INFORMATION
  Report Type: 
  Country: None (occurrence: None)
  Receive Date: 20051228
  Receipt Date: 20051214
  Transmission Date: 20060501
  Serious: Yes (Hospitalization)
  Sender: FDA-Public Use
  Company Number: DE20051101194

PATIENT
  Age: 65 Year
  Sex: Male

DRUGS (6)
  1. GEMZAR [Suspect]
     Indication: PANCREATIC CARCINOMA
     Dosage: SEE IMAGE
     Route: 042
     Dates: start: 20051026, end: 20051026
  2. GEMZAR [Suspect]
     Indication: PANCREATIC CARCINOMA
     Dosage: SEE IMAGE
     Route: 042
     Dates: start: 20051101, end: 20051101
  3. GEMZAR [Suspect]
     Indication: PANCREATIC CARCINOMA
     Dosage: SEE IMAGE
     Route: 042
     Dates: start: 20051102, end: 20051102
  4. ACERCOMP (HYDROCHLOROTHIAZIDE, LISINOPRIL) [Concomitant]
  5. MODURETIC 5-50 [Concomitant]
  6. OMEPRAZOLE [Concomitant]

REACTIONS (20)
  - ACCOMMODATION DISORDER [None]
  - ALCOHOL USE [None]
  - BRAIN OEDEMA [None]
  - CATARACT [None]
  - CENTRAL NERVOUS SYSTEM INFLAMMATION [None]
  - CEREBRAL VASOCONSTRICTION [None]
  - CEREBROVASCULAR DISORDER [None]
  - CHILLS [None]
  - COMA [None]
  - CSF TEST ABNORMAL [None]
  - DEPRESSED LEVEL OF CONSCIOUSNESS [None]
  - EPILEPSY [None]
  - HEMIANOPIA [None]
  - INFLAMMATION [None]
  - JOINT SWELLING [None]
  - MYALGIA [None]
  - NECROSIS [None]
  - PYREXIA [None]
  - SPEECH DISORDER [None]
  - VISUAL ACUITY REDUCED [None]
